FAERS Safety Report 4595477-5 (Version None)
Quarter: 2005Q1

REPORT INFORMATION
  Report Type: 
  Country: None (occurrence: None)
  Receive Date: 20050302
  Receipt Date: 20050220
  Transmission Date: 20050727
  Serious: Yes (Hospitalization, Other)
  Sender: FDA-Public Use
  Company Number: US-JNJFOC-20050205618

PATIENT
  Age: 71 Year
  Sex: Male

DRUGS (2)
  1. INFLIXIMAB [Suspect]
     Indication: CROHN'S DISEASE
     Dosage: TWO DOSES WITH THE FIRST OCCURING FOUR WEEKS PRIOR TO HOSPITALIZATION
     Route: 042
  2. PREDNISONE [Concomitant]

REACTIONS (3)
  - ALVEOLITIS ALLERGIC [None]
  - CORYNEBACTERIUM INFECTION [None]
  - HAEMOPHILUS INFECTION [None]
